FAERS Safety Report 8910599 (Version 1)
Quarter: 2012Q4

REPORT INFORMATION
  Report Type: 
  Country: JM (occurrence: JM)
  Receive Date: 20121114
  Receipt Date: 20121114
  Transmission Date: 20130627
  Serious: Yes (Hospitalization, Other)
  Sender: FDA-Public Use
  Company Number: JM-GLAXOSMITHKLINE-A1000936A

PATIENT
  Age: 66 Year

DRUGS (1)
  1. PAXIL CR [Suspect]
     Indication: ANXIETY
     Dosage: 12.5MG per day
     Route: 048
     Dates: start: 20121101

REACTIONS (2)
  - Insomnia [Unknown]
  - Staring [Unknown]
